FAERS Safety Report 10446382 (Version 14)
Quarter: 2015Q2

REPORT INFORMATION
  Report Type: Report from Study
  Country: CA (occurrence: CA)
  Receive Date: 20140911
  Receipt Date: 20150605
  Transmission Date: 20150821
  Serious: Yes (Other)
  Sender: FDA-Public Use
  Company Number: CA-ROCHE-1395651

PATIENT
  Age: 32 Year
  Sex: Male
  Weight: 65 kg

DRUGS (9)
  1. ACTEMRA [Suspect]
     Active Substance: TOCILIZUMAB
     Indication: JUVENILE IDIOPATHIC ARTHRITIS
     Route: 042
     Dates: start: 20140213
  2. GABAPENTIN. [Concomitant]
     Active Substance: GABAPENTIN
  3. ACTEMRA [Suspect]
     Active Substance: TOCILIZUMAB
     Route: 042
     Dates: start: 20150216
  4. FOLIC ACID. [Concomitant]
     Active Substance: FOLIC ACID
  5. ACTEMRA [Suspect]
     Active Substance: TOCILIZUMAB
     Route: 042
  6. HYDROMORPHONE [Concomitant]
     Active Substance: HYDROMORPHONE
  7. PREDNISONE. [Concomitant]
     Active Substance: PREDNISONE
     Dosage: UNTIL HE STARTS ON ACTEMRA
     Route: 047
  8. ACTEMRA [Suspect]
     Active Substance: TOCILIZUMAB
     Route: 042
     Dates: start: 20150326
  9. CELEBREX [Concomitant]
     Active Substance: CELECOXIB

REACTIONS (18)
  - Injection site pain [Unknown]
  - Migraine [Unknown]
  - Juvenile idiopathic arthritis [Not Recovered/Not Resolved]
  - Dizziness [Not Recovered/Not Resolved]
  - Sputum discoloured [Unknown]
  - Abdominal distension [Unknown]
  - Infusion related reaction [Unknown]
  - Sleep disorder [Not Recovered/Not Resolved]
  - Nasopharyngitis [Unknown]
  - Blood pressure increased [Unknown]
  - Influenza [Recovered/Resolved]
  - Painful defaecation [Unknown]
  - Hypoaesthesia [Not Recovered/Not Resolved]
  - Anxiety [Not Recovered/Not Resolved]
  - Productive cough [Not Recovered/Not Resolved]
  - Transient ischaemic attack [Not Recovered/Not Resolved]
  - Headache [Not Recovered/Not Resolved]
  - Gastroenteritis viral [Recovered/Resolved]

NARRATIVE: CASE EVENT DATE: 201408
